FAERS Safety Report 13931238 (Version 2)
Quarter: 2017Q3

REPORT INFORMATION
  Report Type: Spontaneous
  Country: US (occurrence: US)
  Receive Date: 20170903
  Receipt Date: 20170911
  Transmission Date: 20171127
  Serious: Yes (Hospitalization)
  Sender: FDA-Public Use
  Company Number: US-BAUSCH-BL-2017-025742

PATIENT
  Age: 72 Year
  Sex: Male

DRUGS (2)
  1. XIFAXAN [Suspect]
     Active Substance: RIFAXIMIN
     Indication: HEPATIC CIRRHOSIS
     Route: 065
     Dates: start: 20160725, end: 2017
  2. XIFAXAN [Suspect]
     Active Substance: RIFAXIMIN
     Indication: HEPATIC ENCEPHALOPATHY

REACTIONS (3)
  - Gastric haemorrhage [Unknown]
  - Gastrooesophageal reflux disease [Unknown]
  - Haematemesis [Unknown]

NARRATIVE: CASE EVENT DATE: 20170825
